FAERS Safety Report 8282306-1 (Version None)
Quarter: 2012Q2

REPORT INFORMATION
  Report Type: 
  Country: None (occurrence: None)
  Receive Date: 20120413
  Receipt Date: 20120413
  Transmission Date: 20120825
  Serious: Yes (Life-Threatening, Hospitalization, Other)
  Sender: FDA-Public Use
  Company Number: None

PATIENT
  Sex: Male
  Weight: 72.574 kg

DRUGS (3)
  1. DIVALPROEX SODIUM [Concomitant]
     Route: 048
  2. LEVETIRACETAM [Concomitant]
     Route: 048
  3. DIVALPROEX SODIUM [Suspect]
     Indication: EPILEPSY
     Dosage: 250 MG
     Route: 048
     Dates: start: 20120312, end: 20120322

REACTIONS (2)
  - RESPIRATORY ARREST [None]
  - GRAND MAL CONVULSION [None]
